FAERS Safety Report 6683567-2 (Version None)
Quarter: 2010Q2

REPORT INFORMATION
  Report Type: 
  Country: None (occurrence: None)
  Receive Date: 20100413
  Receipt Date: 20100401
  Transmission Date: 20101027
  Serious: Yes (Death)
  Sender: FDA-Public Use
  Company Number: 1000013030

PATIENT
  Age: 78 Year
  Sex: Female

DRUGS (3)
  1. MEMANTINE HCL [Suspect]
     Indication: DEMENTIA ALZHEIMER'S TYPE
     Dosage: 5 MG, ORAL; 20 MG, ORAL
     Route: 048
     Dates: start: 20090518
  2. MEMANTINE HCL [Suspect]
     Indication: DEMENTIA ALZHEIMER'S TYPE
     Dosage: 5 MG, ORAL; 20 MG, ORAL
     Route: 048
     Dates: start: 20090727
  3. REMINYL [Concomitant]

REACTIONS (1)
  - DEATH [None]
